FAERS Safety Report 7429871-1 (Version None)
Quarter: 2011Q2

REPORT INFORMATION
  Report Type: 
  Country: None (occurrence: None)
  Receive Date: 20110421
  Receipt Date: 20110414
  Transmission Date: 20111010
  Serious: Yes (Death)
  Sender: FDA-Public Use
  Company Number: US-JNJFOC-20090401280

PATIENT
  Sex: Male
  Weight: 102.51 kg

DRUGS (10)
  1. MEPROBAMATE [Concomitant]
  2. PROMETHAZINE [Concomitant]
     Indication: NAUSEA
     Dosage: ONE EVERY 4-6 HOURS
  3. ACETAMINOPHEN [Concomitant]
  4. FENTANYL [Suspect]
     Indication: PAIN
     Route: 062
  5. PERCOCET [Concomitant]
     Indication: PAIN
     Route: 065
  6. CARISOPRODOL [Concomitant]
     Indication: MUSCLE SPASMS
  7. ATENOLOL [Concomitant]
  8. DILAUDID [Concomitant]
     Indication: BREAKTHROUGH PAIN
     Route: 065
  9. ALPRAZOLAM [Concomitant]
     Indication: ANXIETY
  10. AMITRIPTYLINE HCL [Concomitant]

REACTIONS (2)
  - TOXICITY TO VARIOUS AGENTS [None]
  - WRONG TECHNIQUE IN DRUG USAGE PROCESS [None]
